FAERS Safety Report 18701503 (Version 1)
Quarter: 2021Q1

REPORT INFORMATION
  Report Type: Spontaneous
  Country: PL (occurrence: PL)
  Receive Date: 20210105
  Receipt Date: 20210105
  Transmission Date: 20210419
  Serious: Yes (Other)
  Sender: FDA-Public Use
  Company Number: PL-MYLANLABS-2021M1000117

PATIENT
  Age: 28 Year
  Sex: Female

DRUGS (51)
  1. DOXORUBICIN [Suspect]
     Active Substance: DOXORUBICIN
     Indication: HORMONE RECEPTOR POSITIVE BREAST CANCER
  2. DOXORUBICIN [Suspect]
     Active Substance: DOXORUBICIN
     Indication: BREAST CANCER RECURRENT
     Dosage: TWO INFUSIONS
  3. DOXORUBICIN [Suspect]
     Active Substance: DOXORUBICIN
     Indication: HORMONE RECEPTOR POSITIVE BREAST CANCER
  4. CYCLOPHOSPHAMIDE. [Suspect]
     Active Substance: CYCLOPHOSPHAMIDE
     Indication: HORMONE RECEPTOR POSITIVE BREAST CANCER
  5. CYCLOPHOSPHAMIDE. [Suspect]
     Active Substance: CYCLOPHOSPHAMIDE
     Indication: BREAST CANCER RECURRENT
     Dosage: TWO INFUSIONS
  6. GEMCITABINE. [Suspect]
     Active Substance: GEMCITABINE
     Indication: HORMONE RECEPTOR POSITIVE BREAST CANCER
  7. DOXORUBICIN [Suspect]
     Active Substance: DOXORUBICIN
     Indication: OESTROGEN RECEPTOR ASSAY NEGATIVE
  8. CYCLOPHOSPHAMIDE. [Suspect]
     Active Substance: CYCLOPHOSPHAMIDE
     Indication: OESTROGEN RECEPTOR ASSAY NEGATIVE
  9. GEMCITABINE. [Suspect]
     Active Substance: GEMCITABINE
     Indication: HORMONE RECEPTOR POSITIVE BREAST CANCER
  10. CAPECITABINE. [Suspect]
     Active Substance: CAPECITABINE
     Indication: HORMONE RECEPTOR POSITIVE BREAST CANCER
  11. CISPLATIN. [Suspect]
     Active Substance: CISPLATIN
     Indication: BREAST CANCER RECURRENT
     Dosage: TWO INFUSIONS
  12. TRASTUZUMAB. [Suspect]
     Active Substance: TRASTUZUMAB
     Indication: HER2 POSITIVE BREAST CANCER
     Dosage: THIRTEEN COURSES
     Route: 065
  13. CYCLOPHOSPHAMIDE. [Suspect]
     Active Substance: CYCLOPHOSPHAMIDE
     Indication: HORMONE RECEPTOR POSITIVE BREAST CANCER
  14. GEMCITABINE. [Suspect]
     Active Substance: GEMCITABINE
     Indication: OESTROGEN RECEPTOR ASSAY NEGATIVE
  15. DOCETAXEL. [Suspect]
     Active Substance: DOCETAXEL
     Indication: HORMONE RECEPTOR POSITIVE BREAST CANCER
     Dosage: AS PART OF NEOADJUVANT...
     Route: 065
  16. CAPECITABINE. [Suspect]
     Active Substance: CAPECITABINE
     Indication: OESTROGEN RECEPTOR ASSAY NEGATIVE
  17. CAPECITABINE. [Suspect]
     Active Substance: CAPECITABINE
     Indication: HORMONE RECEPTOR POSITIVE BREAST CANCER
  18. VINORELBINE [Suspect]
     Active Substance: VINORELBINE TARTRATE
     Indication: HORMONE RECEPTOR POSITIVE BREAST CANCER
  19. CYCLOPHOSPHAMIDE. [Suspect]
     Active Substance: CYCLOPHOSPHAMIDE
     Indication: HER2 POSITIVE BREAST CANCER
  20. CYCLOPHOSPHAMIDE. [Suspect]
     Active Substance: CYCLOPHOSPHAMIDE
     Indication: HORMONE RECEPTOR POSITIVE BREAST CANCER
  21. CYCLOPHOSPHAMIDE. [Suspect]
     Active Substance: CYCLOPHOSPHAMIDE
     Indication: HER2 POSITIVE BREAST CANCER
  22. DOCETAXEL. [Suspect]
     Active Substance: DOCETAXEL
     Indication: HORMONE RECEPTOR POSITIVE BREAST CANCER
  23. PACLITAXEL. [Suspect]
     Active Substance: PACLITAXEL
     Indication: HER2 POSITIVE BREAST CANCER
     Dosage: THREE INFUSIONS
  24. PACLITAXEL. [Suspect]
     Active Substance: PACLITAXEL
     Indication: BREAST CANCER RECURRENT
  25. VINORELBINE [Suspect]
     Active Substance: VINORELBINE TARTRATE
     Indication: BREAST CANCER RECURRENT
     Dosage: TWO INFUSIONS
  26. VINORELBINE [Suspect]
     Active Substance: VINORELBINE TARTRATE
     Indication: HER2 POSITIVE BREAST CANCER
  27. CISPLATIN. [Suspect]
     Active Substance: CISPLATIN
     Indication: OESTROGEN RECEPTOR ASSAY NEGATIVE
  28. TRASTUZUMAB. [Suspect]
     Active Substance: TRASTUZUMAB
     Indication: PROGESTERONE RECEPTOR ASSAY NEGATIVE
  29. DOCETAXEL. [Suspect]
     Active Substance: DOCETAXEL
     Indication: HORMONE RECEPTOR POSITIVE BREAST CANCER
  30. CAPECITABINE. [Suspect]
     Active Substance: CAPECITABINE
     Indication: BREAST CANCER RECURRENT
     Dosage: TWO INFUSIONS
  31. DOXORUBICIN [Suspect]
     Active Substance: DOXORUBICIN
     Indication: HORMONE RECEPTOR POSITIVE BREAST CANCER
  32. DOXORUBICIN [Suspect]
     Active Substance: DOXORUBICIN
     Indication: HER2 POSITIVE BREAST CANCER
  33. DOXORUBICIN [Suspect]
     Active Substance: DOXORUBICIN
     Indication: HORMONE RECEPTOR POSITIVE BREAST CANCER
  34. CYCLOPHOSPHAMIDE. [Suspect]
     Active Substance: CYCLOPHOSPHAMIDE
     Indication: HORMONE RECEPTOR POSITIVE BREAST CANCER
  35. DOCETAXEL. [Suspect]
     Active Substance: DOCETAXEL
     Indication: HER2 POSITIVE BREAST CANCER
  36. PACLITAXEL. [Suspect]
     Active Substance: PACLITAXEL
     Indication: OESTROGEN RECEPTOR ASSAY NEGATIVE
     Dosage: FIVE INFUSIONS....
  37. PACLITAXEL. [Suspect]
     Active Substance: PACLITAXEL
     Indication: HORMONE RECEPTOR POSITIVE BREAST CANCER
  38. VINORELBINE [Suspect]
     Active Substance: VINORELBINE TARTRATE
     Indication: HORMONE RECEPTOR POSITIVE BREAST CANCER
  39. DOXORUBICIN [Suspect]
     Active Substance: DOXORUBICIN
     Indication: HER2 POSITIVE BREAST CANCER
  40. GEMCITABINE. [Suspect]
     Active Substance: GEMCITABINE
     Indication: HER2 POSITIVE BREAST CANCER
  41. PACLITAXEL. [Suspect]
     Active Substance: PACLITAXEL
     Indication: PROGESTERONE RECEPTOR ASSAY NEGATIVE
  42. PACLITAXEL. [Suspect]
     Active Substance: PACLITAXEL
     Indication: HORMONE RECEPTOR POSITIVE BREAST CANCER
  43. CAPECITABINE. [Suspect]
     Active Substance: CAPECITABINE
     Indication: HER2 POSITIVE BREAST CANCER
  44. VINORELBINE [Suspect]
     Active Substance: VINORELBINE TARTRATE
     Indication: OESTROGEN RECEPTOR ASSAY NEGATIVE
  45. TRASTUZUMAB. [Suspect]
     Active Substance: TRASTUZUMAB
     Indication: OESTROGEN RECEPTOR ASSAY NEGATIVE
  46. DOXORUBICIN [Suspect]
     Active Substance: DOXORUBICIN
     Indication: HORMONE RECEPTOR POSITIVE BREAST CANCER
     Dosage: AS PART OF NEOADJUVANT CHEMOTHERAPY; FOUR COURSES
     Route: 065
  47. CYCLOPHOSPHAMIDE. [Suspect]
     Active Substance: CYCLOPHOSPHAMIDE
     Indication: HORMONE RECEPTOR POSITIVE BREAST CANCER
     Dosage: AS PART OF NEOADJUVANT....
     Route: 065
  48. GEMCITABINE. [Suspect]
     Active Substance: GEMCITABINE
     Indication: BREAST CANCER RECURRENT
     Dosage: EIGHT INFUSIONS
  49. CISPLATIN. [Suspect]
     Active Substance: CISPLATIN
     Indication: HORMONE RECEPTOR POSITIVE BREAST CANCER
     Dosage: EIGHT INFUSIONS...
  50. CISPLATIN. [Suspect]
     Active Substance: CISPLATIN
     Indication: HER2 POSITIVE BREAST CANCER
  51. CISPLATIN. [Suspect]
     Active Substance: CISPLATIN
     Indication: HORMONE RECEPTOR POSITIVE BREAST CANCER

REACTIONS (4)
  - Triple negative breast cancer [Recovering/Resolving]
  - Drug ineffective [Unknown]
  - Malignant neoplasm progression [Recovering/Resolving]
  - Breast cancer recurrent [Recovering/Resolving]
